FAERS Safety Report 15627219 (Version 1)
Quarter: 2018Q4

REPORT INFORMATION
  Report Type: Spontaneous
  Country: AR (occurrence: AR)
  Receive Date: 20181116
  Receipt Date: 20181116
  Transmission Date: 20190205
  Serious: Yes (Hospitalization, Other)
  Sender: FDA-Public Use
  Company Number: AR-PFIZER INC-2018420450

PATIENT
  Age: 75 Year
  Sex: Female

DRUGS (3)
  1. IBRANCE [Suspect]
     Active Substance: PALBOCICLIB
     Indication: BREAST CANCER METASTATIC
     Dosage: 125 MG, CYCLIC (SCHEME 3X1)
     Dates: start: 20180219
  2. PAMIDRONATO [Concomitant]
     Active Substance: PAMIDRONATE DISODIUM
     Indication: BONE DENSITY DECREASED
     Dosage: UNK
     Dates: start: 201801
  3. LETROZOL [Concomitant]
     Active Substance: LETROZOLE
     Dosage: UNK

REACTIONS (4)
  - Cardiac failure [Recovered/Resolved]
  - Renal failure [Recovered/Resolved]
  - Pulmonary oedema [Recovered/Resolved]
  - Respiratory failure [Recovered/Resolved]

NARRATIVE: CASE EVENT DATE: 201807
